FAERS Safety Report 7291409-X (Version None)
Quarter: 2011Q1

REPORT INFORMATION
  Report Type: 
  Country: None (occurrence: None)
  Receive Date: 20110214
  Receipt Date: 20110208
  Transmission Date: 20110831
  Serious: Yes (Other)
  Sender: FDA-Public Use
  Company Number: B0699102A

PATIENT
  Age: 23 Year
  Sex: Female

DRUGS (3)
  1. UNKNOWN DRUG [Concomitant]
     Route: 048
  2. SULTANOL [Suspect]
     Route: 055
     Dates: start: 20110104
  3. HOKUNALIN [Concomitant]
     Route: 065

REACTIONS (2)
  - DRUG EXPOSURE DURING PREGNANCY [None]
  - ANGINA PECTORIS [None]
